FAERS Safety Report 20446825 (Version 1)
Quarter: 2022Q1

REPORT INFORMATION
  Report Type: Report from Study
  Country: CA (occurrence: CA)
  Receive Date: 20220208
  Receipt Date: 20220208
  Transmission Date: 20220423
  Serious: Yes (Other)
  Sender: FDA-Public Use
  Company Number: CA-JNJFOC-20220153878

PATIENT
  Age: 61 Year
  Sex: Male
  Weight: 114.5 kg

DRUGS (2)
  1. REMICADE [Suspect]
     Active Substance: INFLIXIMAB
     Indication: Colitis ulcerative
     Dosage: TREATMENT ALSO RECEIVED 24-NOV-2010
     Route: 042
     Dates: start: 20100308
  2. REMICADE [Suspect]
     Active Substance: INFLIXIMAB
     Route: 042

REACTIONS (3)
  - Colitis ulcerative [Not Recovered/Not Resolved]
  - COVID-19 [Unknown]
  - Myalgia [Unknown]
